FAERS Safety Report 15752938 (Version 1)
Quarter: 2018Q4

REPORT INFORMATION
  Report Type: Spontaneous
  Country: ES (occurrence: ES)
  Receive Date: 20181221
  Receipt Date: 20181221
  Transmission Date: 20190205
  Serious: Yes (Other)
  Sender: FDA-Public Use
  Company Number: ES-TOLMAR, INC.-TOLG20180735

PATIENT
  Age: 48 Year
  Sex: Female

DRUGS (7)
  1. FLUTICASONE PROPIONATE. [Suspect]
     Active Substance: FLUTICASONE PROPIONATE
     Indication: ASTHMA
     Dosage: 2 PUFFS OF 250 MCG
     Dates: start: 2011
  2. DARUNAVIR [Concomitant]
     Active Substance: DARUNAVIR
     Indication: HIV INFECTION
     Dosage: 800 MG
     Route: 065
  3. LAMIVUDINE. [Concomitant]
     Active Substance: LAMIVUDINE
     Indication: PRODUCT USED FOR UNKNOWN INDICATION
     Dosage: 300 MG
     Route: 065
  4. SALBUTAMOL [Concomitant]
     Active Substance: ALBUTEROL
     Indication: ASTHMA
     Dosage: 1 PUFF OF 100 MCG
  5. SALMETEROL [Concomitant]
     Active Substance: SALMETEROL
     Indication: ASTHMA
     Dosage: 2 PUFFS OF 25 MCG
     Route: 065
     Dates: start: 2011
  6. ZAFIRLUKAST. [Concomitant]
     Active Substance: ZAFIRLUKAST
     Indication: ASTHMA
     Dosage: 20 MG
     Route: 065
  7. RITONAVIR. [Interacting]
     Active Substance: RITONAVIR
     Indication: HIV INFECTION
     Dosage: 100 MG
     Route: 065

REACTIONS (13)
  - Cushing^s syndrome [Recovering/Resolving]
  - Hirsutism [Recovering/Resolving]
  - Adrenal insufficiency [Recovering/Resolving]
  - Hypoglycaemia [Recovered/Resolved]
  - Hypotension [Recovered/Resolved]
  - Asthenia [Recovering/Resolving]
  - Muscular weakness [Recovering/Resolving]
  - Cushingoid [Recovering/Resolving]
  - Skin striae [Recovering/Resolving]
  - Secondary hypogonadism [Recovering/Resolving]
  - Drug interaction [Recovering/Resolving]
  - Central obesity [Unknown]
  - Lipohypertrophy [Recovering/Resolving]
